FAERS Safety Report 16599821 (Version 1)
Quarter: 2019Q3

REPORT INFORMATION
  Report Type: Spontaneous
  Country: FR (occurrence: FR)
  Receive Date: 20190719
  Receipt Date: 20190719
  Transmission Date: 20191004
  Serious: Yes (Other)
  Sender: FDA-Public Use
  Company Number: FR-ALLERGAN-1929185US

PATIENT
  Sex: Female

DRUGS (2)
  1. CITALOPRAM HYDROBROMIDE - BP [Suspect]
     Active Substance: CITALOPRAM HYDROBROMIDE
     Indication: STRESS
     Dosage: 0.5 DF, QD
     Route: 048
  2. CITALOPRAM HYDROBROMIDE - BP [Suspect]
     Active Substance: CITALOPRAM HYDROBROMIDE
     Dosage: 20 MG, QD
     Route: 048
     Dates: start: 2018

REACTIONS (4)
  - Product use in unapproved indication [Unknown]
  - Wrong technique in product usage process [Unknown]
  - Hyperthyroidism [Unknown]
  - Blood thyroid stimulating hormone decreased [Not Recovered/Not Resolved]

NARRATIVE: CASE EVENT DATE: 2019
